FAERS Safety Report 9251410 (Version 1)
Quarter: 2013Q2

REPORT INFORMATION
  Report Type: Spontaneous
  Country: US (occurrence: US)
  Receive Date: 20130424
  Receipt Date: 20130424
  Transmission Date: 20140414
  Serious: Yes (Other)
  Sender: FDA-Public Use
  Company Number: US-PFIZER INC-2013127159

PATIENT
  Sex: Female

DRUGS (2)
  1. LYRICA [Suspect]
     Dosage: UNK
  2. VICTOZA [Suspect]
     Dosage: 1.2 MG, UNK

REACTIONS (3)
  - Glycosylated haemoglobin increased [Unknown]
  - Increased appetite [Unknown]
  - Nausea [Unknown]
